FAERS Safety Report 26212968 (Version 1)
Quarter: 2025Q4

REPORT INFORMATION
  Report Type: Spontaneous
  Country: JP (occurrence: JP)
  Receive Date: 20251230
  Receipt Date: 20251230
  Transmission Date: 20260117
  Serious: Yes (Other)
  Sender: RANBAXY
  Company Number: JP-SUN PHARMACEUTICAL INDUSTRIES INC-2025R1-543798

PATIENT
  Age: 53 Year
  Sex: Male

DRUGS (9)
  1. ISONIAZID [Suspect]
     Active Substance: ISONIAZID
     Indication: Tuberculosis
     Dosage: UNK
     Route: 065
  2. PYRAZINAMIDE [Suspect]
     Active Substance: PYRAZINAMIDE
     Indication: Tuberculosis
     Dosage: UNK
     Route: 065
  3. SULFAMETHOXAZOLE\TRIMETHOPRIM [Suspect]
     Active Substance: SULFAMETHOXAZOLE\TRIMETHOPRIM
     Indication: Prophylaxis
     Dosage: 80 MG TMP/400 MG SMX
     Route: 065
  4. PREDNISOLONE [Suspect]
     Active Substance: PREDNISOLONE
     Indication: Tuberculosis
     Dosage: 60 MILLIGRAM, QD,  (1 MG/KG/DAY)
     Route: 065
  5. PREDNISOLONE [Suspect]
     Active Substance: PREDNISOLONE
     Dosage: TAPERED BY 10 MG WEEKLY
     Route: 065
  6. LAMIVUDINE [Suspect]
     Active Substance: LAMIVUDINE
     Indication: Antiretroviral therapy
     Dosage: UNK
     Route: 065
  7. RIFABUTIN [Suspect]
     Active Substance: RIFABUTIN
     Indication: Tuberculosis
     Dosage: UNK
     Route: 065
  8. ETHAMBUTOL [Suspect]
     Active Substance: ETHAMBUTOL HYDROCHLORIDE
     Indication: Tuberculosis
     Dosage: UNK
     Route: 065
  9. DOLUTEGRAVIR [Suspect]
     Active Substance: DOLUTEGRAVIR
     Indication: Antiretroviral therapy
     Dosage: UNK
     Route: 065

REACTIONS (1)
  - Cerebral toxoplasmosis [Recovered/Resolved]
